FAERS Safety Report 7682723-4 (Version None)
Quarter: 2011Q3

REPORT INFORMATION
  Report Type: 
  Country: None (occurrence: None)
  Receive Date: 20110815
  Receipt Date: 20110808
  Transmission Date: 20111222
  Serious: Yes (Other)
  Sender: FDA-Public Use
  Company Number: US-CEPHALON-2009002843

PATIENT
  Sex: Female
  Weight: 61 kg

DRUGS (4)
  1. PROVIGIL [Suspect]
     Indication: SLEEP APNOEA SYNDROME
     Route: 048
     Dates: start: 20090329
  2. TOPAMAX [Concomitant]
     Dates: start: 20040101
  3. LAMICTAL [Concomitant]
     Dates: start: 20070101, end: 20090331
  4. PREVACID [Concomitant]
     Dates: start: 20070101

REACTIONS (4)
  - PRURITUS [None]
  - RASH [None]
  - BURNING SENSATION [None]
  - FEELING HOT [None]
